FAERS Safety Report 11692126 (Version 5)
Quarter: 2016Q3

REPORT INFORMATION
  Report Type: Spontaneous
  Country: CA (occurrence: CA)
  Receive Date: 20151103
  Receipt Date: 20160805
  Transmission Date: 20161109
  Serious: Yes (Other)
  Sender: FDA-Public Use
  Company Number: CA-AMGEN-CANSP2015114671

PATIENT
  Age: 51 Year
  Sex: Female
  Weight: 63 kg

DRUGS (14)
  1. NAPROXEN. [Concomitant]
     Active Substance: NAPROXEN
     Indication: ARTHRALGIA
     Dosage: 500 MG, BID
     Route: 048
  2. ENBREL [Suspect]
     Active Substance: ETANERCEPT
     Indication: RHEUMATOID ARTHRITIS
     Dosage: 50 MG, QWK
     Route: 058
     Dates: start: 200812, end: 201007
  3. DEPO-MEDROL [Concomitant]
     Active Substance: METHYLPREDNISOLONE ACETATE
     Indication: RHEUMATOID ARTHRITIS
     Dosage: 80 MG, UNK
     Route: 014
  4. METHOTREXATE. [Suspect]
     Active Substance: METHOTREXATE
     Dosage: 2.5 MG,  8 TABLETS ONCE A WEEK X 2
     Route: 048
     Dates: start: 201409
  5. METHOTREXATE. [Suspect]
     Active Substance: METHOTREXATE
     Dosage: 15 MG, QWK
     Route: 048
  6. HUMIRA [Concomitant]
     Active Substance: ADALIMUMAB
     Dosage: 40 MG, QWK
     Route: 058
     Dates: start: 201008, end: 201312
  7. VIMOVO [Concomitant]
     Active Substance: ESOMEPRAZOLE MAGNESIUM\NAPROXEN
     Dosage: 500-20 MG TABLET 1 TABLET(S) TWO TIMES DAILY
     Dates: start: 20140911
  8. LYRICA [Concomitant]
     Active Substance: PREGABALIN
     Indication: RHEUMATOID ARTHRITIS
     Dosage: 150 MG, BID
     Route: 048
  9. METHOTREXATE. [Suspect]
     Active Substance: METHOTREXATE
     Indication: RHEUMATOID ARTHRITIS
     Dosage: 25 MG, UNK
     Route: 058
     Dates: end: 2008
  10. FOLIC ACID. [Concomitant]
     Active Substance: FOLIC ACID
     Dosage: 5 MG, QWK
     Dates: start: 20140911
  11. HUMIRA [Concomitant]
     Active Substance: ADALIMUMAB
     Dosage: UNK
     Route: 065
  12. ACTEMRA [Concomitant]
     Active Substance: TOCILIZUMAB
     Dosage: UNK
     Dates: end: 2014
  13. PREDNISONE. [Suspect]
     Active Substance: PREDNISONE
     Indication: RHEUMATOID ARTHRITIS
     Dosage: UNK
     Route: 065
  14. METHOTREXATE. [Suspect]
     Active Substance: METHOTREXATE
     Dosage: 20 MG, QWK
     Route: 058
     Dates: start: 2014

REACTIONS (36)
  - Rheumatoid arthritis [Unknown]
  - Mobility decreased [Unknown]
  - Pain in extremity [Unknown]
  - Arthralgia [Unknown]
  - Photophobia [Unknown]
  - Interstitial lung disease [Unknown]
  - Joint swelling [Unknown]
  - Musculoskeletal pain [Unknown]
  - Musculoskeletal stiffness [Unknown]
  - Drug ineffective [Unknown]
  - Dry eye [Unknown]
  - Pleuritic pain [Unknown]
  - Osteoarthritis [Unknown]
  - Activities of daily living impaired [Unknown]
  - Ocular hyperaemia [Unknown]
  - Nervousness [Unknown]
  - Swelling [Unknown]
  - Eye irritation [Unknown]
  - Fibromyalgia [Unknown]
  - Fatigue [Unknown]
  - Joint crepitation [Unknown]
  - Gait disturbance [Unknown]
  - Eye pain [Unknown]
  - Pain [Unknown]
  - Abdominal pain [Unknown]
  - Dyspnoea [Unknown]
  - Nausea [Unknown]
  - Tenosynovitis stenosans [Unknown]
  - Mass [Unknown]
  - Maternal exposure during pregnancy [Recovered/Resolved]
  - Synovial cyst [Unknown]
  - Lung disorder [Unknown]
  - Condition aggravated [Unknown]
  - Nodule [Unknown]
  - Infection [Unknown]
  - Chest pain [Unknown]

NARRATIVE: CASE EVENT DATE: 2011
